FAERS Safety Report 8410157-3 (Version None)
Quarter: 2012Q2

REPORT INFORMATION
  Report Type: 
  Country: None (occurrence: None)
  Receive Date: 20120605
  Receipt Date: 20120527
  Transmission Date: 20120825
  Serious: Yes (Other)
  Sender: FDA-Public Use
  Company Number: PHEH2012US009067

PATIENT
  Sex: Female

DRUGS (3)
  1. CARBAMAZEPINE [Suspect]
  2. TOPAMAX [Concomitant]
     Dosage: 1 DF, UNK
  3. TEGRETOL [Suspect]
     Dosage: 200 MG, 5QD

REACTIONS (3)
  - AMNESIA [None]
  - RASH [None]
  - CONVULSION [None]
